FAERS Safety Report 5094923-0 (Version None)
Quarter: 2006Q3

REPORT INFORMATION
  Report Type: 
  Country: None (occurrence: None)
  Receive Date: 20060901
  Receipt Date: 20060825
  Transmission Date: 20061208
  Serious: Yes (Hospitalization, Other)
  Sender: FDA-Public Use
  Company Number: GB-JNJFOC-20060504422

PATIENT
  Sex: Male
  Weight: 92 kg

DRUGS (11)
  1. REMICADE [Suspect]
     Indication: RHEUMATOID ARTHRITIS
     Route: 042
  2. METHOTREXATE [Concomitant]
     Route: 065
  3. PREDNISOLONE [Concomitant]
     Route: 065
  4. ADCAL [Concomitant]
     Route: 065
  5. AMLODIPINE [Concomitant]
     Route: 065
  6. BUPRENORPHINE HCL [Concomitant]
     Route: 065
  7. CELEBREX [Concomitant]
     Route: 065
  8. DOXYCYCLINE [Concomitant]
     Route: 065
  9. FOLIC ACID [Concomitant]
     Route: 065
  10. FOSAMAX [Concomitant]
     Route: 065
  11. SSZ [Concomitant]
     Route: 065

REACTIONS (1)
  - PNEUMOCYSTIS JIROVECI PNEUMONIA [None]
